FAERS Safety Report 4628983-5 (Version None)
Quarter: 2005Q2

REPORT INFORMATION
  Report Type: 
  Country: None (occurrence: None)
  Receive Date: 20050405
  Receipt Date: 20050405
  Transmission Date: 20051028
  Serious: Yes (Disabling)
  Sender: FDA-Public Use
  Company Number: None

PATIENT
  Sex: Female
  Weight: 68.0396 kg

DRUGS (1)
  1. CIPROFLOXACIN HCL [Suspect]
     Indication: CYSTITIS
     Dosage: 500 MG 2 PER DAY ORAL
     Route: 048
     Dates: start: 20050107, end: 20050112

REACTIONS (4)
  - ARTHRALGIA [None]
  - ASTHENIA [None]
  - PARAESTHESIA [None]
  - TENDONITIS [None]
